FAERS Safety Report 10580535 (Version 2)
Quarter: 2014Q4

REPORT INFORMATION
  Report Type: Report from Study
  Country: US (occurrence: US)
  Receive Date: 20141113
  Receipt Date: 20141113
  Transmission Date: 20150529
  Serious: Yes (Death)
  Sender: FDA-Public Use
  Company Number: US-JNJFOC-20090609259

PATIENT
  Age: 61 Year
  Sex: Female
  Weight: 83.92 kg

DRUGS (5)
  1. NEXIUM [Suspect]
     Active Substance: ESOMEPRAZOLE MAGNESIUM
     Indication: PROPHYLAXIS
     Route: 048
     Dates: start: 20061216, end: 20070426
  2. NEXIUM [Suspect]
     Active Substance: ESOMEPRAZOLE MAGNESIUM
     Indication: RHEUMATOID ARTHRITIS
     Route: 048
     Dates: start: 20061216, end: 20070426
  3. NEXIUM [Suspect]
     Active Substance: ESOMEPRAZOLE MAGNESIUM
     Indication: OSTEOARTHRITIS
     Route: 048
     Dates: start: 20061216, end: 20070426
  4. IBUPROFEN. [Suspect]
     Active Substance: IBUPROFEN
     Indication: OSTEOARTHRITIS
     Route: 048
     Dates: start: 20061216, end: 20070426
  5. IBUPROFEN. [Suspect]
     Active Substance: IBUPROFEN
     Indication: RHEUMATOID ARTHRITIS
     Route: 048
     Dates: start: 20061216, end: 20070426

REACTIONS (3)
  - Lung neoplasm malignant [Fatal]
  - Metastases to bone [Fatal]
  - Adrenal gland cancer metastatic [Fatal]

NARRATIVE: CASE EVENT DATE: 20081129
